FAERS Safety Report 9376252 (Version 3)
Quarter: 2013Q4

REPORT INFORMATION
  Report Type: Spontaneous
  Country: FI (occurrence: FI)
  Receive Date: 20130701
  Receipt Date: 20131008
  Transmission Date: 20140711
  Serious: Yes (Hospitalization, Disabling, Other)
  Sender: FDA-Public Use
  Company Number: FI-AMGEN-FINSP2013041075

PATIENT
  Age: 76 Year
  Sex: Female

DRUGS (7)
  1. ENBREL [Suspect]
     Indication: RHEUMATOID ARTHRITIS
     Dosage: 50 MG, WEEKLY
     Route: 058
     Dates: start: 20101203, end: 201109
  2. ENBREL [Suspect]
     Dosage: UNK
     Route: 065
     Dates: start: 201204, end: 201209
  3. ALENDRONATE SODIUM [Concomitant]
     Dosage: UNK
  4. CALCICHEW-D3 FORTE [Concomitant]
     Dosage: UNK
  5. PREDNISON [Concomitant]
     Dosage: 5 MG, UNK
  6. NAPROMETIN [Concomitant]
     Dosage: 500 MG, AS NEEDED
  7. ZOLT                               /01159001/ [Concomitant]
     Dosage: 15 MG, UNK

REACTIONS (3)
  - Pyrexia [Unknown]
  - Drug ineffective [Unknown]
  - Arthritis bacterial [Recovered/Resolved]
